FAERS Safety Report 7145046-8 (Version None)
Quarter: 2010Q4

REPORT INFORMATION
  Report Type: 
  Country: None (occurrence: None)
  Receive Date: 20101208
  Receipt Date: 20101125
  Transmission Date: 20110411
  Serious: Yes (Disabling)
  Sender: FDA-Public Use
  Company Number: PHFR2010GB05623

PATIENT
  Age: 58 Year
  Sex: Female

DRUGS (7)
  1. ZOLEDRONIC ACID [Suspect]
     Indication: OSTEOPOROSIS
     Dosage: 5 MG
     Route: 042
     Dates: start: 20100303, end: 20100303
  2. ADCAL-D3 [Concomitant]
     Dosage: 1 DF, BID
     Route: 048
  3. AMOXICILLIN [Concomitant]
     Dosage: 500 MG, TID
     Route: 048
     Dates: start: 20101025
  4. CO-CODAMOL [Concomitant]
     Route: 048
  5. LANSOPRAZOLE [Concomitant]
     Dosage: 30 MG, QD
     Route: 048
  6. MELOXICAM [Concomitant]
     Dosage: 7.5 MG, QD
     Route: 048
  7. ACETAMINOPHEN [Concomitant]
     Dosage: 1000 MG, BID

REACTIONS (5)
  - ARTHRALGIA [None]
  - FATIGUE [None]
  - INFLUENZA LIKE ILLNESS [None]
  - PAIN [None]
  - RHEUMATOID ARTHRITIS [None]
